FAERS Safety Report 11839294 (Version 1)
Quarter: 2015Q4

REPORT INFORMATION
  Report Type: Spontaneous
  Country: US (occurrence: US)
  Receive Date: 20151216
  Receipt Date: 20151216
  Transmission Date: 20160305
  Serious: No
  Sender: FDA-Public Use
  Company Number: US-TEVA-599090USA

PATIENT
  Sex: Female

DRUGS (1)
  1. TOLMETIN [Suspect]
     Active Substance: TOLMETIN
     Route: 065

REACTIONS (1)
  - Drug hypersensitivity [Unknown]
